FAERS Safety Report 5819847-X (Version None)
Quarter: 2008Q3

REPORT INFORMATION
  Report Type: 
  Country: None (occurrence: None)
  Receive Date: 20080723
  Receipt Date: 20080711
  Transmission Date: 20090109
  Serious: Yes (Other)
  Sender: FDA-Public Use
  Company Number: AU-PFIZER INC-2008060007

PATIENT
  Sex: Female

DRUGS (2)
  1. CHANTIX [Suspect]
  2. SULFASALAZINE [Concomitant]

REACTIONS (11)
  - DIZZINESS [None]
  - DYSGEUSIA [None]
  - DYSPHONIA [None]
  - INCREASED APPETITE [None]
  - LIP SWELLING [None]
  - NAUSEA [None]
  - OROPHARYNGEAL PAIN [None]
  - PARAESTHESIA ORAL [None]
  - RASH PRURITIC [None]
  - VERTIGO [None]
  - VISION BLURRED [None]
